FAERS Safety Report 20783098 (Version 2)
Quarter: 2022Q3

REPORT INFORMATION
  Report Type: Spontaneous
  Country: US (occurrence: US)
  Receive Date: 20220504
  Receipt Date: 20220706
  Transmission Date: 20221026
  Serious: Yes (Other)
  Sender: FDA-Public Use
  Company Number: US-BTGSP-US-BTGSP-22-0047

PATIENT

DRUGS (3)
  1. VORAXAZE [Suspect]
     Active Substance: GLUCARPIDASE
     Indication: Toxicity to various agents
     Dosage: 50 UNITS/KG
     Route: 042
     Dates: start: 20220421
  2. VORAXAZE [Suspect]
     Active Substance: GLUCARPIDASE
     Dosage: 50 UNITS/KG
     Route: 042
     Dates: start: 20220423
  3. METHOTREXATE [Suspect]
     Active Substance: METHOTREXATE
     Indication: Product used for unknown indication
     Dosage: 3 G/M2
     Route: 065
     Dates: start: 20220420

REACTIONS (4)
  - Drug ineffective [Unknown]
  - Off label use [Unknown]
  - Intentional product use issue [Unknown]
  - Laboratory test interference [Unknown]
